FAERS Safety Report 25311319 (Version 2)
Quarter: 2025Q2

REPORT INFORMATION
  Report Type: Spontaneous
  Country: JP (occurrence: JP)
  Receive Date: 20250514
  Receipt Date: 20250609
  Transmission Date: 20250717
  Serious: Yes (Death)
  Sender: DAIICHI
  Company Number: JP-DSJP-DS-2025-137495-JP

PATIENT
  Age: 5 Decade
  Sex: Female

DRUGS (2)
  1. DATROWAY [Suspect]
     Active Substance: DATOPOTAMAB DERUXTECAN-DLNK
     Indication: Hormone receptor positive HER2 negative breast cancer
     Route: 065
     Dates: start: 20250324, end: 20250324
  2. DATROWAY [Suspect]
     Active Substance: DATOPOTAMAB DERUXTECAN-DLNK
     Route: 065
     Dates: start: 20250414, end: 20250414

REACTIONS (2)
  - Disease progression [Fatal]
  - Lacrimation increased [Unknown]

NARRATIVE: CASE EVENT DATE: 20250401
